FAERS Safety Report 7511096-2 (Version None)
Quarter: 2011Q2

REPORT INFORMATION
  Report Type: 
  Country: None (occurrence: None)
  Receive Date: 20110531
  Receipt Date: 20110517
  Transmission Date: 20111010
  Serious: Yes (Other)
  Sender: FDA-Public Use
  Company Number: RS-JNJFOC-20110509120

PATIENT
  Age: 24 Year
  Sex: Male

DRUGS (3)
  1. RISPERDAL CONSTA [Suspect]
     Indication: PSYCHOTIC DISORDER
     Route: 030
     Dates: start: 20090310, end: 20110310
  2. ZOLOFT [Suspect]
     Indication: PSYCHOTIC DISORDER
     Route: 048
     Dates: start: 20101028, end: 20110301
  3. ZOLOFT [Suspect]
     Indication: DEPRESSIVE SYMPTOM
     Route: 048
     Dates: start: 20101028, end: 20110301

REACTIONS (1)
  - GENERALISED OEDEMA [None]
